FAERS Safety Report 17181845 (Version 4)
Quarter: 2020Q3

REPORT INFORMATION
  Report Type: Report from Study
  Country: None (occurrence: CA)
  Receive Date: 20191220
  Receipt Date: 20200719
  Transmission Date: 20201102
  Serious: Yes (Hospitalization, Other)
  Sender: FDA-Public Use
  Company Number: CA-ABBVIE-19K-028-3176257-00

PATIENT
  Age: 21 Year
  Sex: Female

DRUGS (3)
  1. HUMIRA [Suspect]
     Active Substance: ADALIMUMAB
     Indication: CROHN^S DISEASE
     Route: 058
     Dates: start: 20190919, end: 2019
  2. HUMIRA [Suspect]
     Active Substance: ADALIMUMAB
     Route: 058
     Dates: start: 2019, end: 2020
  3. HUMIRA [Suspect]
     Active Substance: ADALIMUMAB
     Route: 058
     Dates: start: 202003

REACTIONS (9)
  - Vaginal abscess [Not Recovered/Not Resolved]
  - Crohn^s disease [Not Recovered/Not Resolved]
  - Pouchitis [Not Recovered/Not Resolved]
  - Drain placement [Not Recovered/Not Resolved]
  - Fistula [Recovered/Resolved]
  - Rectal abscess [Recovered/Resolved]
  - Pain [Unknown]
  - Anorectal disorder [Not Recovered/Not Resolved]
  - Fistula discharge [Unknown]

NARRATIVE: CASE EVENT DATE: 2019
